FAERS Safety Report 18162607 (Version 2)
Quarter: 2020Q3

REPORT INFORMATION
  Report Type: Spontaneous
  Country: US (occurrence: US)
  Receive Date: 20200818
  Receipt Date: 20200930
  Transmission Date: 20201103
  Serious: No
  Sender: FDA-Public Use
  Company Number: US-PFIZER INC-2020316498

PATIENT
  Age: 53 Year
  Sex: Male

DRUGS (2)
  1. BRAFTOVI [Suspect]
     Active Substance: ENCORAFENIB
     Indication: RECTAL CANCER
     Dosage: UNK (FULL DOSE)
     Route: 048
     Dates: start: 20200529
  2. BRAFTOVI [Suspect]
     Active Substance: ENCORAFENIB
     Dosage: 150 MG, DAILY (TAKE 2 CAPSULES DAILY)
     Route: 048
     Dates: start: 20200529, end: 20200929

REACTIONS (1)
  - Fatigue [Recovering/Resolving]
